FAERS Safety Report 5949380-6 (Version None)
Quarter: 2008Q4

REPORT INFORMATION
  Report Type: 
  Country: None (occurrence: None)
  Receive Date: 20081112
  Receipt Date: 20081029
  Transmission Date: 20090506
  Serious: Yes (Life-Threatening, Hospitalization, Other)
  Sender: FDA-Public Use
  Company Number: PHHY2008GB23978

PATIENT
  Sex: Female

DRUGS (4)
  1. CLOZARIL [Suspect]
     Indication: SCHIZOPHRENIA
     Dosage: 500 MG/DAY
     Dates: start: 19990913
  2. RISPERIDONE [Concomitant]
     Indication: SCHIZOPHRENIA
     Dosage: 3 MG/DAY
     Route: 048
  3. TEMAZEPAM [Concomitant]
     Indication: INSOMNIA
     Dosage: 20 MG
     Route: 048
  4. OPIOIDS [Concomitant]
     Indication: PAIN IN EXTREMITY

REACTIONS (2)
  - LOWER RESPIRATORY TRACT INFECTION [None]
  - PLATELET COUNT INCREASED [None]
